FAERS Safety Report 9055271 (Version 4)
Quarter: 2013Q1

REPORT INFORMATION
  Report Type: Spontaneous
  Country: US (occurrence: US)
  Receive Date: 20130206
  Receipt Date: 20130311
  Transmission Date: 20140127
  Serious: Yes (Other)
  Sender: FDA-Public Use
  Company Number: US-JNJFOC-20130110335

PATIENT
  Age: 94 None
  Sex: Female
  Weight: 61.24 kg

DRUGS (11)
  1. XARELTO [Suspect]
     Indication: CEREBROVASCULAR ACCIDENT PROPHYLAXIS
     Route: 048
  2. XARELTO [Suspect]
     Indication: CEREBROVASCULAR ACCIDENT PROPHYLAXIS
     Route: 048
     Dates: end: 20130125
  3. XARELTO [Suspect]
     Indication: CEREBROVASCULAR ACCIDENT PROPHYLAXIS
     Route: 048
     Dates: start: 20120902
  4. XARELTO [Suspect]
     Indication: ATRIAL FIBRILLATION
     Route: 048
  5. XARELTO [Suspect]
     Indication: ATRIAL FIBRILLATION
     Route: 048
     Dates: end: 20130125
  6. XARELTO [Suspect]
     Indication: ATRIAL FIBRILLATION
     Route: 048
     Dates: start: 20120902
  7. AMLODIPINE [Concomitant]
     Route: 065
  8. LISINOPRIL [Concomitant]
     Route: 065
  9. LUMIGAN [Concomitant]
     Route: 047
  10. VITAMIN D [Concomitant]
     Route: 065
  11. SOTALOL [Concomitant]
     Route: 065

REACTIONS (7)
  - Haemorrhage [Not Recovered/Not Resolved]
  - Hepatic haemorrhage [Not Recovered/Not Resolved]
  - Abdominal pain [Unknown]
  - Hepatic cyst [Not Recovered/Not Resolved]
  - Haemorrhagic cyst [Not Recovered/Not Resolved]
  - Musculoskeletal pain [Not Recovered/Not Resolved]
  - Inappropriate schedule of drug administration [Unknown]
